FAERS Safety Report 8261029-9 (Version None)
Quarter: 2012Q2

REPORT INFORMATION
  Report Type: 
  Country: None (occurrence: None)
  Receive Date: 20120405
  Receipt Date: 20120402
  Transmission Date: 20120825
  Serious: No
  Sender: FDA-Public Use
  Company Number: US-PFIZER INC-2012084147

PATIENT
  Sex: Female
  Weight: 70.748 kg

DRUGS (7)
  1. TENORMIN [Concomitant]
     Indication: HYPERTENSION
     Dosage: 25 MG, DAILY
  2. LEXAPRO [Suspect]
     Indication: ANXIETY
     Dosage: UNK
  3. PROZAC [Suspect]
     Indication: ANXIETY
     Dosage: UNK
  4. GLYBURIDE [Concomitant]
     Indication: DIABETES MELLITUS
     Dosage: 1.25 MG, DAILY
  5. CAPTOPRIL [Concomitant]
     Indication: HYPERTENSION
     Dosage: 25 MG, 2X/DAY
  6. XANAX XR [Suspect]
     Indication: ANXIETY
     Dosage: 2MG DAILY
     Dates: start: 20080101, end: 20120331
  7. ZOLOFT [Suspect]
     Indication: ANXIETY
     Dosage: UNK

REACTIONS (6)
  - ANXIETY [None]
  - DRUG INEFFECTIVE [None]
  - NERVOUSNESS [None]
  - NAUSEA [None]
  - DECREASED APPETITE [None]
  - INSOMNIA [None]
